FAERS Safety Report 6902476-4 (Version None)
Quarter: 2010Q3

REPORT INFORMATION
  Report Type: 
  Country: None (occurrence: None)
  Receive Date: 20100802
  Receipt Date: 20100802
  Transmission Date: 20110219
  Serious: Yes (Hospitalization)
  Sender: FDA-Public Use
  Company Number: None

PATIENT
  Sex: Female
  Weight: 62.6 kg

DRUGS (19)
  1. SORAFENIB 200MG PO BID [Suspect]
     Indication: BREAST CANCER METASTATIC
     Dosage: 200MG BID PO
     Route: 048
     Dates: start: 20100203, end: 20100719
  2. VINORELBINE TARTRATE [Suspect]
     Indication: BREAST CANCER METASTATIC
     Dosage: 20MG/M2 WEEKLYX3 Q 28D
     Dates: start: 20100203, end: 20100707
  3. AREDIA [Concomitant]
  4. CELEBREX [Concomitant]
  5. COMPAZINE [Concomitant]
  6. CYMBALTA [Concomitant]
  7. DULCOLAX [Concomitant]
  8. FENTANYL CITRATE [Concomitant]
  9. FENTORA [Concomitant]
  10. FLEXERIL [Concomitant]
  11. IMODIUM [Concomitant]
  12. LUNESTA [Concomitant]
  13. MEGACE [Concomitant]
  14. METOPROLOL [Concomitant]
  15. MIRALAX PRN [Concomitant]
  16. NEURONTIN [Concomitant]
  17. OXYCODONE HCL [Concomitant]
  18. TYLENOL PRN [Concomitant]
  19. XANAX [Concomitant]

REACTIONS (3)
  - DYSPNOEA [None]
  - HAEMOGLOBIN DECREASED [None]
  - METASTASES TO LYMPH NODES [None]
